FAERS Safety Report 7487625-4 (Version None)
Quarter: 2011Q2

REPORT INFORMATION
  Report Type: 
  Country: None (occurrence: None)
  Receive Date: 20110518
  Receipt Date: 20110503
  Transmission Date: 20111010
  Serious: No
  Sender: FDA-Public Use
  Company Number: US-B.I. PHARMACEUTICALS,INC./RIDGEFIELD-2011-BP-05957BP

PATIENT
  Sex: Male

DRUGS (5)
  1. CELEBREX [Concomitant]
  2. PRADAXA [Suspect]
     Indication: ATRIAL FIBRILLATION
     Dosage: 300 MG
     Route: 048
     Dates: start: 20101201, end: 20110101
  3. ACETAMINOPHEN [Concomitant]
  4. NIASPAN [Concomitant]
  5. FLECAINIDE ACETATE [Concomitant]

REACTIONS (3)
  - OESOPHAGEAL PAIN [None]
  - OESOPHAGEAL SPASM [None]
  - GASTROOESOPHAGEAL REFLUX DISEASE [None]
